FAERS Safety Report 8363495-7 (Version None)
Quarter: 2012Q1

REPORT INFORMATION
  Report Type: 
  Country: None (occurrence: None)
  Receive Date: 20120323
  Receipt Date: 20110411
  Transmission Date: 20120608
  Serious: Yes (Other)
  Sender: FDA-Public Use
  Company Number: 163-21880-11041493

PATIENT
  Age: 48 Year
  Sex: Female

DRUGS (5)
  1. REVLIMID [Suspect]
     Indication: MULTIPLE MYELOMA
     Dosage: 25 MG, 1 IN 1 D, PO10 MG, 1 IN 1 D, PO 15 MG, 1 IN 1 D, PO 15 MG, QD, PO
     Route: 048
     Dates: start: 20100801
  2. REVLIMID [Suspect]
     Indication: MULTIPLE MYELOMA
     Dosage: 25 MG, 1 IN 1 D, PO10 MG, 1 IN 1 D, PO 15 MG, 1 IN 1 D, PO 15 MG, QD, PO
     Route: 048
     Dates: start: 20110310
  3. REVLIMID [Suspect]
     Indication: MULTIPLE MYELOMA
     Dosage: 25 MG, 1 IN 1 D, PO10 MG, 1 IN 1 D, PO 15 MG, 1 IN 1 D, PO 15 MG, QD, PO
     Route: 048
     Dates: start: 20101201
  4. REVLIMID [Suspect]
     Indication: MULTIPLE MYELOMA
     Dosage: 25 MG, 1 IN 1 D, PO10 MG, 1 IN 1 D, PO 15 MG, 1 IN 1 D, PO 15 MG, QD, PO
     Route: 048
     Dates: start: 20091001
  5. OXYCODONE/APAP (OXYCODONE/APAP) [Concomitant]

REACTIONS (1)
  - OEDEMA PERIPHERAL [None]
